FAERS Safety Report 4472773-3 (Version None)
Quarter: 2004Q4

REPORT INFORMATION
  Report Type: 
  Country: None (occurrence: None)
  Receive Date: 20041008
  Receipt Date: 20040921
  Transmission Date: 20050328
  Serious: Yes (Disabling)
  Sender: FDA-Public Use
  Company Number: GBS040915632

PATIENT
  Age: 17 Year
  Sex: Male
  Weight: 106 kg

DRUGS (2)
  1. STRATTERA [Suspect]
     Indication: ATTENTION DEFICIT/HYPERACTIVITY DISORDER
     Dosage: 40 MG
     Dates: start: 20040828, end: 20040902
  2. CONCERTA [Concomitant]

REACTIONS (4)
  - IRRITABILITY [None]
  - NAUSEA [None]
  - PHYSICAL ASSAULT [None]
  - VOMITING [None]
